FAERS Safety Report 19719384 (Version 2)
Quarter: 2021Q3

REPORT INFORMATION
  Report Type: Report from Study
  Country: GB (occurrence: GB)
  Receive Date: 20210819
  Receipt Date: 20210917
  Transmission Date: 20211014
  Serious: Yes (Other)
  Sender: FDA-Public Use
  Company Number: GB-CELLTRION INC.-2021GB001866

PATIENT

DRUGS (34)
  1. PERTUZUMAB. [Suspect]
     Active Substance: PERTUZUMAB
     Dosage: 840 MG, TIW (LOADING DOSE)(DOSE FORM: 230)(CUMULATIVE DOSE TO FIRST REACTION:14280MG)
     Route: 042
     Dates: start: 20170524, end: 20170524
  2. APIXABAN [Concomitant]
     Active Substance: APIXABAN
     Indication: DEPRESSED MOOD
     Dosage: 2.5 MG (2X/DAY)
     Route: 048
     Dates: start: 20190819, end: 20190917
  3. SANDO K [Concomitant]
     Indication: PRODUCT USED FOR UNKNOWN INDICATION
     Dosage: 1 DF (2X/DAY)
     Route: 048
     Dates: start: 20170525
  4. TRASTUZUMAB. [Suspect]
     Active Substance: TRASTUZUMAB
     Indication: BREAST CANCER
     Dosage: 400 MG, TIW (CUMULATIVE DOSE TO FIRST REACTION: 12973MG)
     Route: 042
     Dates: start: 20170614, end: 20180425
  5. RANITIDINE. [Concomitant]
     Active Substance: RANITIDINE
     Indication: PRODUCT USED FOR UNKNOWN INDICATION
     Dosage: 150 MG (2X/DAY)
     Route: 048
     Dates: start: 20170525
  6. TINZAPARIN [Concomitant]
     Active Substance: TINZAPARIN
     Indication: PRODUCT USED FOR UNKNOWN INDICATION
     Dosage: UNK
     Route: 058
     Dates: start: 20190916
  7. TINZAPARIN [Concomitant]
     Active Substance: TINZAPARIN
     Dosage: UNK, QD
     Route: 058
     Dates: start: 20170713, end: 20190723
  8. TRASTUZUMAB. [Suspect]
     Active Substance: TRASTUZUMAB
     Dosage: 378 MG, TIW (CUMULATIVE DOSE TO FIRST REACTION: 12973MG)
     Route: 042
     Dates: start: 20180516, end: 20190327
  9. TRASTUZUMAB. [Suspect]
     Active Substance: TRASTUZUMAB
     Dosage: 525 MG, TIW (LOADING DOSE)(CUMULATIVE DOSE TO FIRST REACTION: 12973MG)
     Route: 042
     Dates: start: 20170524, end: 20170524
  10. TRASTUZUMAB EMTANSINE [Suspect]
     Active Substance: ADO-TRASTUZUMAB EMTANSINE
     Indication: BREAST CANCER
     Dosage: 160 MG, TIW (DOSE FORM: 230)(CUMULATIVE DOSE TO FIRST REACTION: 880MG)
     Route: 042
     Dates: start: 20190829
  11. ERYTHROMYCIN. [Concomitant]
     Active Substance: ERYTHROMYCIN
     Indication: PRODUCT USED FOR UNKNOWN INDICATION
     Dosage: UNK (DOSE: UNK MG.)
     Route: 048
     Dates: start: 20190123, end: 20190202
  12. SORBINICATE [Concomitant]
     Active Substance: SORBINICATE
     Indication: PRODUCT USED FOR UNKNOWN INDICATION
     Dosage: 1 DF (4X/DAY)
     Route: 060
     Dates: start: 20170526
  13. TRANEXAMIC ACID. [Concomitant]
     Active Substance: TRANEXAMIC ACID
     Indication: PRODUCT USED FOR UNKNOWN INDICATION
     Dosage: UNK
     Route: 065
     Dates: start: 20190722
  14. PACLITAXEL. [Suspect]
     Active Substance: PACLITAXEL
     Dosage: 450 MG, TIW (CUMULATIVE DOSE: 2100MG)
     Route: 042
     Dates: start: 20170614, end: 20170614
  15. CHLORPHENAMINE [Concomitant]
     Active Substance: CHLORPHENIRAMINE MALEATE
     Indication: PRODUCT USED FOR UNKNOWN INDICATION
     Dosage: 4 MG (4X/DAY)
     Route: 048
     Dates: start: 20170526
  16. ZOLEDRONIC ACID [Concomitant]
     Active Substance: ZOLEDRONIC ACID
     Indication: PRODUCT USED FOR UNKNOWN INDICATION
     Dosage: 4 MG
     Route: 042
     Dates: start: 20170525
  17. PERTUZUMAB. [Suspect]
     Active Substance: PERTUZUMAB
     Indication: BREAST CANCER
     Dosage: 420 MG, TIW (LOADING DOSE)(DOSE FORM: 230)(CUMULATIVE DOSE TO FIRST REACTION:14280MG)
     Route: 042
     Dates: start: 20170614, end: 20190327
  18. CETIRIZINE [Concomitant]
     Active Substance: CETIRIZINE HYDROCHLORIDE
     Indication: PRODUCT USED FOR UNKNOWN INDICATION
     Dosage: 10 MG,QD (CUMULATIVE DOSE TO FIRST REACTION: 1359.5834 MG)
     Route: 048
     Dates: start: 20190313
  19. FLUCLOXACILLIN [Concomitant]
     Active Substance: FLUCLOXACILLIN
     Indication: PRODUCT USED FOR UNKNOWN INDICATION
     Dosage: UNK
     Route: 048
     Dates: start: 20190122
  20. FUSIDIC ACID [Concomitant]
     Active Substance: FUSIDIC ACID
     Indication: PRODUCT USED FOR UNKNOWN INDICATION
     Dosage: UNK
     Route: 065
     Dates: start: 201905
  21. PARACETAMOL [Concomitant]
     Active Substance: ACETAMINOPHEN
     Indication: PRODUCT USED FOR UNKNOWN INDICATION
     Dosage: UNK
     Route: 048
     Dates: start: 20170525
  22. TRASTUZUMAB EMTANSINE [Suspect]
     Active Substance: ADO-TRASTUZUMAB EMTANSINE
     Dosage: 240 MG, TIW (DOSE FORM: 230)(CUMULATIVE DOSE TO FIRST REACTION: 880MG)
     Route: 042
     Dates: start: 20190427, end: 20190606
  23. AMITRIPTYLINE HYDROCHLORIDE. [Concomitant]
     Active Substance: AMITRIPTYLINE HYDROCHLORIDE
     Indication: DEPRESSED MOOD
     Dosage: 5 MG, ONCE DAILY (CUMULATIVE DOSE TO FIRST REACTION: 155.0MG)
     Route: 048
     Dates: start: 20190827
  24. CALCICHEW D3 FORTE [Concomitant]
     Active Substance: CALCIUM\CHOLECALCIFEROL
     Indication: PRODUCT USED FOR UNKNOWN INDICATION
     Dosage: UNK (3X/DAY)
     Route: 048
     Dates: start: 20170525
  25. LOPERAMIDE [Concomitant]
     Active Substance: LOPERAMIDE
     Indication: PRODUCT USED FOR UNKNOWN INDICATION
     Dosage: 2 MG
     Route: 048
     Dates: start: 20170613
  26. DOCETAXEL. [Suspect]
     Active Substance: DOCETAXEL
     Indication: BREAST CANCER
     Dosage: 130 MG, TIW
     Route: 042
     Dates: start: 20170525, end: 20170525
  27. PACLITAXEL. [Suspect]
     Active Substance: PACLITAXEL
     Indication: BREAST CANCER
     Dosage: 450 MG, TIW (CUMULATIVE DOSE TO FIRST REACTION: 2100MG)
     Route: 042
     Dates: start: 20170816, end: 20170906
  28. TRASTUZUMAB EMTANSINE [Suspect]
     Active Substance: ADO-TRASTUZUMAB EMTANSINE
     Dosage: 200 MG, TIW (DOSE FORM: 230)(CUMULATIVE DOSE TO FIRST REACTION: 880MG)
     Route: 042
     Dates: start: 20190627, end: 20190718
  29. TRASTUZUMAB EMTANSINE [Suspect]
     Active Substance: ADO-TRASTUZUMAB EMTANSINE
     Dosage: UNK(DOSE FORM: 230)(CUMULATIVE DOSE TO FIRST REACTION: 880MG)
     Route: 065
  30. IKERVIS [Concomitant]
     Active Substance: CYCLOSPORINE
     Indication: PRODUCT USED FOR UNKNOWN INDICATION
     Dosage: UNK
     Route: 047
     Dates: start: 201708
  31. PACLITAXEL. [Suspect]
     Active Substance: PACLITAXEL
     Dosage: 375 MG, TIW (CUMULATIVE DOSE TO FIRST REACTION: 2100MG)
     Route: 042
     Dates: start: 20170705, end: 20170726
  32. CHLORHEXIDINE GLUCONATE. [Concomitant]
     Active Substance: CHLORHEXIDINE GLUCONATE
     Indication: PRODUCT USED FOR UNKNOWN INDICATION
     Dosage: 10 ML (4X/DAY)
     Route: 061
     Dates: start: 20170525
  33. CLOBETASOL PROPIONATE. [Concomitant]
     Active Substance: CLOBETASOL PROPIONATE
     Indication: PRODUCT USED FOR UNKNOWN INDICATION
     Dosage: 0.05 % (CYCLIC)
     Route: 061
     Dates: start: 20170210
  34. DOMPERIDONE [Concomitant]
     Active Substance: DOMPERIDONE
     Indication: PRODUCT USED FOR UNKNOWN INDICATION
     Dosage: 10 MG (CYCLIC)
     Route: 048
     Dates: start: 20170523

REACTIONS (2)
  - Gastritis [Not Recovered/Not Resolved]
  - Off label use [Not Recovered/Not Resolved]

NARRATIVE: CASE EVENT DATE: 20190727
